FAERS Safety Report 8173281-9 (Version None)
Quarter: 2012Q1

REPORT INFORMATION
  Report Type: 
  Country: None (occurrence: None)
  Receive Date: 20120229
  Receipt Date: 20120222
  Transmission Date: 20120608
  Serious: Yes (Death, Hospitalization, Other)
  Sender: FDA-Public Use
  Company Number: US-JNJFOC-20100901284

PATIENT
  Sex: Female

DRUGS (1)
  1. LEVAQUIN [Suspect]
     Indication: ILL-DEFINED DISORDER
     Route: 048

REACTIONS (6)
  - SKIN BURNING SENSATION [None]
  - STOMATITIS [None]
  - MULTI-ORGAN FAILURE [None]
  - DYSPHAGIA [None]
  - RASH [None]
  - WOUND [None]
